FAERS Safety Report 25859961 (Version 1)
Quarter: 2025Q3

REPORT INFORMATION
  Report Type: Spontaneous
  Country: AU (occurrence: AU)
  Receive Date: 20250929
  Receipt Date: 20250929
  Transmission Date: 20251020
  Serious: Yes (Other)
  Sender: AMGEN
  Company Number: AU-AMGEN-AUSSP2025192194

PATIENT
  Age: 72 Year
  Sex: Female

DRUGS (5)
  1. PROLIA [Suspect]
     Active Substance: DENOSUMAB
     Indication: Osteoporosis
     Dosage: 60 MILLIGRAM, Q6MO (5 YR DURATION)
     Route: 065
     Dates: start: 2018, end: 202306
  2. PROLIA [Suspect]
     Active Substance: DENOSUMAB
     Indication: Pathological fracture
  3. PROLIA [Suspect]
     Active Substance: DENOSUMAB
     Indication: Radius fracture
  4. PROLIA [Suspect]
     Active Substance: DENOSUMAB
     Indication: Foot fracture
  5. PANTOPRAZOLE [Concomitant]
     Active Substance: PANTOPRAZOLE
     Dosage: 20 MILLIGRAM, QD

REACTIONS (3)
  - Osteonecrosis of external auditory canal [Recovering/Resolving]
  - Nephrolithiasis [Unknown]
  - Hypercalcaemia [Unknown]

NARRATIVE: CASE EVENT DATE: 20230101
